FAERS Safety Report 7243645-6 (Version None)
Quarter: 2011Q1

REPORT INFORMATION
  Report Type: 
  Country: None (occurrence: None)
  Receive Date: 20110125
  Receipt Date: 20110118
  Transmission Date: 20110831
  Serious: Yes (Other)
  Sender: FDA-Public Use
  Company Number: PHHY2011DK04978

PATIENT
  Sex: Male

DRUGS (1)
  1. LESCOL [Suspect]
     Dosage: UNK

REACTIONS (3)
  - KIDNEY TRANSPLANT REJECTION [None]
  - MUSCULOSKELETAL DISCOMFORT [None]
  - MEMORY IMPAIRMENT [None]
